FAERS Safety Report 24874468 (Version 1)
Quarter: 2025Q1

REPORT INFORMATION
  Report Type: Spontaneous
  Country: GB (occurrence: GB)
  Receive Date: 20250122
  Receipt Date: 20250122
  Transmission Date: 20250409
  Serious: Yes (Other)
  Sender: TEVA
  Company Number: GB-MHRA-TPP29914890C6951093YC1736854874597

PATIENT
  Age: 81 Year
  Sex: Male
  Weight: 117 kg

DRUGS (13)
  1. TAMSULOSIN [Suspect]
     Active Substance: TAMSULOSIN
     Indication: Ill-defined disorder
     Route: 065
     Dates: start: 20250114
  2. BUMETANIDE [Concomitant]
     Active Substance: BUMETANIDE
     Indication: Ill-defined disorder
     Dosage: TAKE THREE TABLETS (3MG) IN THE MORNING AND TAK...
     Route: 065
     Dates: start: 20250114
  3. INDORAMIN [Concomitant]
     Active Substance: INDORAMIN
     Indication: Ill-defined disorder
     Dosage: ONE TO BE TAKEN DAILY
     Route: 065
     Dates: start: 20240226, end: 20250114
  4. FINASTERIDE [Concomitant]
     Active Substance: FINASTERIDE
     Indication: Ill-defined disorder
     Dosage: TAKE ONE DAILY
     Route: 065
     Dates: start: 20240226
  5. THIAMINE [Concomitant]
     Active Substance: THIAMINE
     Indication: Ill-defined disorder
     Dosage: OD
     Route: 065
     Dates: start: 20240226
  6. FUROSEMIDE [Concomitant]
     Active Substance: FUROSEMIDE
     Indication: Ill-defined disorder
     Dosage: TAKE ONE DAILY
     Route: 065
     Dates: start: 20240226, end: 20250114
  7. DIGOXIN [Concomitant]
     Active Substance: DIGOXIN
     Indication: Ill-defined disorder
     Dosage: 1D
     Route: 065
     Dates: start: 20240226, end: 20250114
  8. EPLERENONE [Concomitant]
     Active Substance: EPLERENONE
     Indication: Ill-defined disorder
     Dosage: TAKE ONE IN THE MORNING (THIS MEDICATION IS HEL...
     Route: 065
     Dates: start: 20250114
  9. CHOLECALCIFEROL [Concomitant]
     Active Substance: CHOLECALCIFEROL
     Indication: Ill-defined disorder
     Dosage: 2 CAP EVERY DAY
     Route: 065
     Dates: start: 20241017, end: 20241020
  10. EZETIMIBE [Concomitant]
     Active Substance: EZETIMIBE
     Indication: Blood cholesterol
     Dosage: TAKE ONE TABLET DAILY FOR CHOLESTEROL
     Route: 065
     Dates: start: 20240726
  11. RAMIPRIL [Concomitant]
     Active Substance: RAMIPRIL
     Indication: Ill-defined disorder
     Dosage: TAKE ONE DAILY (THIS MEDICATION IS HELPFUL IF Y...
     Route: 065
     Dates: start: 20250114
  12. DAPAGLIFLOZIN [Concomitant]
     Active Substance: DAPAGLIFLOZIN
     Indication: Ill-defined disorder
     Dosage: TAKE ONE DAILY (THIS MEDICATION IS HELPFUL IF Y...
     Route: 065
     Dates: start: 20250114
  13. OMEPRAZOLE [Concomitant]
     Active Substance: OMEPRAZOLE
     Indication: Ill-defined disorder
     Dosage: TAKE ONE DAILY
     Route: 065
     Dates: start: 20240226

REACTIONS (1)
  - Dermatitis allergic [Unknown]

NARRATIVE: CASE EVENT DATE: 20250114
